FAERS Safety Report 16819715 (Version 4)
Quarter: 2019Q4

REPORT INFORMATION
  Report Type: Report from Study
  Country: CO (occurrence: CO)
  Receive Date: 20190917
  Receipt Date: 20191218
  Transmission Date: 20200122
  Serious: Yes (Hospitalization, Other)
  Sender: FDA-Public Use
  Company Number: PHHY2019CO074770

PATIENT
  Sex: Female
  Weight: 50 kg

DRUGS (6)
  1. TYKERB [Suspect]
     Active Substance: LAPATINIB DITOSYLATE
     Dosage: 1250 MG, QD
     Route: 048
     Dates: start: 20180606, end: 201811
  2. TYKERB [Suspect]
     Active Substance: LAPATINIB DITOSYLATE
     Indication: BREAST CANCER
     Dosage: 1250 MG
     Route: 048
     Dates: start: 2018
  3. TRASTUZUMAB. [Concomitant]
     Active Substance: TRASTUZUMAB
     Indication: PRODUCT USED FOR UNKNOWN INDICATION
     Dosage: 440 MG, EVERY 21 DAYS
     Route: 042
  4. TYKERB [Suspect]
     Active Substance: LAPATINIB DITOSYLATE
     Dosage: 1250 MG, QD
     Route: 048
     Dates: start: 201903
  5. DEXAMETHASONE. [Concomitant]
     Active Substance: DEXAMETHASONE
     Indication: PRODUCT USED FOR UNKNOWN INDICATION
     Dosage: 8 MG, EVERY 21 DAYS
     Route: 042
  6. ALENDRONIC ACID [Concomitant]
     Active Substance: ALENDRONIC ACID
     Indication: PRODUCT USED FOR UNKNOWN INDICATION
     Dosage: 6 ML, EVERY 21 DAYS
     Route: 042

REACTIONS (10)
  - Malignant neoplasm progression [Recovering/Resolving]
  - Speech disorder [Unknown]
  - Amnesia [Unknown]
  - Breast cancer [Recovering/Resolving]
  - Gait inability [Unknown]
  - Decreased appetite [Unknown]
  - Hypotonia [Unknown]
  - General physical health deterioration [Unknown]
  - Mobility decreased [Unknown]
  - Hydrocephalus [Recovering/Resolving]
